FAERS Safety Report 21905650 (Version 2)
Quarter: 2023Q1

REPORT INFORMATION
  Report Type: Report from Study
  Country: BR (occurrence: BR)
  Receive Date: 20230124
  Receipt Date: 20230308
  Transmission Date: 20230418
  Serious: Yes (Death, Other)
  Sender: FDA-Public Use
  Company Number: BR-BAYER-2023A008366

PATIENT
  Age: 72 Year
  Sex: Male

DRUGS (3)
  1. NEXAVAR [Suspect]
     Active Substance: SORAFENIB
     Indication: Hepatocellular carcinoma
     Dosage: 800 MG, QD
     Dates: start: 202202, end: 202209
  2. CALCIUM [Concomitant]
     Active Substance: CALCIUM
     Indication: Spinal fracture
     Dosage: UNK UNK, Q3MON
     Dates: start: 20220826
  3. LOSARTAN POTASSIUM [Concomitant]
     Active Substance: LOSARTAN POTASSIUM
     Indication: Hypertension
     Dosage: 2 DF, QD

REACTIONS (4)
  - Myocardial infarction [Fatal]
  - Fracture pain [Fatal]
  - Spinal fracture [None]
  - Fall [None]

NARRATIVE: CASE EVENT DATE: 20220801
